FAERS Safety Report 15228802 (Version 1)
Quarter: 2018Q3

REPORT INFORMATION
  Report Type: Report from Study
  Country: US (occurrence: US)
  Receive Date: 20180801
  Receipt Date: 20180801
  Transmission Date: 20181010
  Serious: No
  Sender: FDA-Public Use
  Company Number: US-AMGEN-USASL2017128562

PATIENT
  Sex: Female

DRUGS (2)
  1. IMMUNOGLOBULIN [Concomitant]
     Dosage: UNK
     Route: 042
  2. NPLATE [Suspect]
     Active Substance: ROMIPLOSTIM
     Indication: IMMUNE THROMBOCYTOPENIC PURPURA
     Dosage: UNK
     Route: 065

REACTIONS (3)
  - Injection site pain [Unknown]
  - Platelet count abnormal [Unknown]
  - Intentional product misuse [Unknown]
